FAERS Safety Report 18238342 (Version 6)
Quarter: 2022Q2

REPORT INFORMATION
  Report Type: Spontaneous
  Country: US (occurrence: US)
  Receive Date: 20200907
  Receipt Date: 20220427
  Transmission Date: 20220721
  Serious: No
  Sender: FDA-Public Use
  Company Number: US-PFIZER INC-2020343038

PATIENT
  Age: 66 Year
  Sex: Female

DRUGS (2)
  1. EUCRISA [Suspect]
     Active Substance: CRISABOROLE
     Dosage: APPLY DAILY TO AFFECTED AREAS AT NIGHT AND EVERY MORNING
  2. CLINDAMYCIN HYDROCHLORIDE [Concomitant]
     Active Substance: CLINDAMYCIN HYDROCHLORIDE
     Indication: Sinusitis
     Dosage: UNK

REACTIONS (3)
  - Rash macular [Unknown]
  - Pruritus [Unknown]
  - Pain [Unknown]
